FAERS Safety Report 10302787 (Version 1)
Quarter: 2014Q3

REPORT INFORMATION
  Report Type: Spontaneous
  Country: US (occurrence: US)
  Receive Date: 20140714
  Receipt Date: 20140714
  Transmission Date: 20150326
  Serious: Yes (Death)
  Sender: FDA-Public Use
  Company Number: US-GLAXOSMITHKLINE-A1080943A

PATIENT
  Age: 62 Year
  Sex: Male

DRUGS (14)
  1. ZOMETA [Concomitant]
     Active Substance: ZOLEDRONIC ACID
  2. MORPHINE [Concomitant]
     Active Substance: MORPHINE
  3. ESCITALOPRAM [Concomitant]
     Active Substance: ESCITALOPRAM OXALATE
  4. COLACE [Concomitant]
     Active Substance: DOCUSATE SODIUM
  5. OXYCODONE [Concomitant]
     Active Substance: OXYCODONE
  6. LISINOPRIL. [Concomitant]
     Active Substance: LISINOPRIL
  7. AMBIEN [Concomitant]
     Active Substance: ZOLPIDEM TARTRATE
  8. MEGESTROL [Concomitant]
     Active Substance: MEGESTROL
  9. VOTRIENT [Suspect]
     Active Substance: PAZOPANIB HYDROCHLORIDE
     Indication: RENAL FAILURE CHRONIC
     Dosage: 800MG PER DAY
     Route: 048
     Dates: start: 20140506
  10. TYLENOL [Concomitant]
     Active Substance: ACETAMINOPHEN
  11. CALCIUM WITH VITAMIN D [Concomitant]
     Active Substance: CALCIUM\VITAMIN D
  12. AMLODIPINE [Concomitant]
     Active Substance: AMLODIPINE BESYLATE
  13. ORPHENADRINE [Concomitant]
     Active Substance: ORPHENADRINE
  14. SENNA [Concomitant]
     Active Substance: SENNA LEAF\SENNOSIDES\SENNOSIDES A AND B

REACTIONS (1)
  - Cerebrovascular accident [Fatal]
